FAERS Safety Report 4365636-5 (Version None)
Quarter: 2004Q2

REPORT INFORMATION
  Report Type: 
  Country: None (occurrence: None)
  Receive Date: 20040520
  Receipt Date: 20040505
  Transmission Date: 20050107
  Serious: Yes (Other)
  Sender: FDA-Public Use
  Company Number: 200411654GDS

PATIENT
  Age: 20 Year
  Sex: Female

DRUGS (1)
  1. AVELOX [Suspect]
     Indication: SINUSITIS
     Dosage: 400 MG, TOTAL DAILY, ORAL
     Route: 048
     Dates: start: 20040428, end: 20040429

REACTIONS (3)
  - LEUKOCYTOCLASTIC VASCULITIS [None]
  - MYALGIA [None]
  - PETECHIAE [None]
